FAERS Safety Report 4871955-6 (Version None)
Quarter: 2005Q4

REPORT INFORMATION
  Report Type: 
  Country: None (occurrence: None)
  Receive Date: 20051230
  Receipt Date: 20051208
  Transmission Date: 20060501
  Serious: Yes (Hospitalization)
  Sender: FDA-Public Use
  Company Number: FR200512001678

PATIENT
  Age: 8 Year
  Sex: Male
  Weight: 21 kg

DRUGS (2)
  1. SOMATROPIN(SOMATROPIN) VIAL [Suspect]
     Indication: CONGENITAL ANOMALY
     Dosage: 1.2 MG, DAILY (1/D), SUBCUTANEOUS
     Route: 058
     Dates: start: 20011119
  2. HUMATROPEN [Concomitant]

REACTIONS (3)
  - INGUINAL HERNIA [None]
  - MONARTHRITIS [None]
  - SYNOVITIS [None]
